FAERS Safety Report 6286383-9 (Version None)
Quarter: 2009Q4

REPORT INFORMATION
  Report Type: 
  Country: None (occurrence: None)
  Receive Date: 20090727
  Receipt Date: 20090727
  Transmission Date: 20100525
  Serious: No
  Sender: FDA-Public Use
  Company Number: None

PATIENT
  Age: 65 Year
  Sex: Male

DRUGS (3)
  1. AMOXICILLIN [Suspect]
     Dates: start: 20071108, end: 20071117
  2. AZATHIOPRINE [Suspect]
     Dates: start: 20071106, end: 20071211
  3. IMURAN [Concomitant]

REACTIONS (7)
  - CHOLESTASIS [None]
  - EOSINOPHILIA [None]
  - HEPATITIS CHOLESTATIC [None]
  - HEPATOTOXICITY [None]
  - HYPOTENSION [None]
  - LEUKOCYTOSIS [None]
  - LIVER INJURY [None]
